FAERS Safety Report 8571757-3 (Version None)
Quarter: 2012Q3

REPORT INFORMATION
  Report Type: 
  Country: None (occurrence: None)
  Receive Date: 20120806
  Receipt Date: 20120802
  Transmission Date: 20120928
  Serious: Yes (Life-Threatening, Other)
  Sender: FDA-Public Use
  Company Number: PHHY2012FR059007

PATIENT
  Sex: Female
  Weight: 56 kg

DRUGS (4)
  1. VITAMIN D [Concomitant]
     Indication: VITAMIN D DEFICIENCY
     Dosage: 1 DF EVERY 14 DAYS
     Dates: start: 20111111
  2. EXELON [Suspect]
     Indication: DEMENTIA ALZHEIMER'S TYPE
     Dosage: 4.6 MG
     Route: 062
     Dates: start: 20111128, end: 20120112
  3. POLYETHYLENE GLYCOL [Concomitant]
     Indication: CONSTIPATION
     Dosage: 1 DF DAILY
     Dates: start: 20110520
  4. XANAX [Suspect]
     Indication: ANXIETY
     Dosage: UNK UKN, UNK
     Dates: start: 20110520

REACTIONS (1)
  - CHEST PAIN [None]
